FAERS Safety Report 15274626 (Version 21)
Quarter: 2020Q2

REPORT INFORMATION
  Report Type: Report from Study
  Country: None (occurrence: US)
  Receive Date: 20180814
  Receipt Date: 20200614
  Transmission Date: 20200713
  Serious: Yes (Hospitalization, Other)
  Sender: FDA-Public Use
  Company Number: US-ABBVIE-18K-163-2448595-00

PATIENT
  Age: 70 Year
  Sex: Male
  Weight: 93.52 kg

DRUGS (16)
  1. HUMIRA [Suspect]
     Active Substance: ADALIMUMAB
     Route: 058
     Dates: start: 20190516, end: 20190516
  2. IRON [Concomitant]
     Active Substance: IRON
     Indication: MINERAL SUPPLEMENTATION
  3. FIBER [Concomitant]
     Active Substance: PSYLLIUM HUSK
     Indication: PRODUCT USED FOR UNKNOWN INDICATION
  4. HUMIRA [Suspect]
     Active Substance: ADALIMUMAB
     Route: 058
     Dates: start: 20190530, end: 20190530
  5. CENTRUM [Concomitant]
     Active Substance: VITAMINS
     Indication: PRODUCT USED FOR UNKNOWN INDICATION
  6. HUMIRA [Suspect]
     Active Substance: ADALIMUMAB
     Route: 058
     Dates: end: 20190206
  7. ASPIRIN. [Concomitant]
     Active Substance: ASPIRIN
     Indication: PRODUCT USED FOR UNKNOWN INDICATION
  8. CALCIUM D3 [Concomitant]
     Active Substance: CALCIUM\CHOLECALCIFEROL
     Indication: PRODUCT USED FOR UNKNOWN INDICATION
  9. VITAMIN D [Concomitant]
     Active Substance: VITAMIN D NOS
     Indication: PRODUCT USED FOR UNKNOWN INDICATION
  10. HUMIRA [Suspect]
     Active Substance: ADALIMUMAB
     Route: 058
     Dates: start: 201801, end: 2018
  11. OMEPRAZOLE. [Concomitant]
     Active Substance: OMEPRAZOLE
     Indication: PRODUCT USED FOR UNKNOWN INDICATION
  12. HUMIRA [Suspect]
     Active Substance: ADALIMUMAB
     Indication: CROHN^S DISEASE
     Route: 058
     Dates: start: 201412, end: 201801
  13. ATORVASTATIN [Concomitant]
     Active Substance: ATORVASTATIN
     Indication: PRODUCT USED FOR UNKNOWN INDICATION
  14. LOMOTIL [Concomitant]
     Active Substance: ATROPINE SULFATE\DIPHENOXYLATE HYDROCHLORIDE
     Indication: PRODUCT USED FOR UNKNOWN INDICATION
  15. HUMIRA [Suspect]
     Active Substance: ADALIMUMAB
     Route: 058
     Dates: start: 201903
  16. POTASSIUM [Concomitant]
     Active Substance: POTASSIUM
     Indication: PRODUCT USED FOR UNKNOWN INDICATION

REACTIONS (45)
  - Adhesion [Recovered/Resolved]
  - Brain hypoxia [Unknown]
  - Fluid retention [Unknown]
  - Swelling of eyelid [Unknown]
  - Joint injury [Recovering/Resolving]
  - Knee arthroplasty [Recovered/Resolved]
  - Pulmonary oedema [Unknown]
  - Cerebrovascular accident [Recovered/Resolved with Sequelae]
  - Joint instability [Unknown]
  - Amnesia [Not Recovered/Not Resolved]
  - Aneurysm [Unknown]
  - Hypertension [Recovering/Resolving]
  - Pneumonia [Unknown]
  - Gastrointestinal inflammation [Unknown]
  - Aortic dilatation [Recovered/Resolved]
  - Cardiac operation [Not Recovered/Not Resolved]
  - Squamous cell carcinoma [Not Recovered/Not Resolved]
  - Gingivitis [Recovered/Resolved]
  - Large intestinal ulcer [Unknown]
  - Blood magnesium decreased [Unknown]
  - Arthritis [Unknown]
  - Headache [Recovered/Resolved]
  - Dehydration [Unknown]
  - Cataract [Not Recovered/Not Resolved]
  - Transient ischaemic attack [Recovered/Resolved with Sequelae]
  - Eyelid ptosis [Not Recovered/Not Resolved]
  - Visual impairment [Not Recovered/Not Resolved]
  - Hip arthroplasty [Recovered/Resolved]
  - Basal cell carcinoma [Not Recovered/Not Resolved]
  - Balance disorder [Not Recovered/Not Resolved]
  - Heavy exposure to ultraviolet light [Unknown]
  - Cardiac valve disease [Not Recovered/Not Resolved]
  - Fall [Recovered/Resolved]
  - Blood triglycerides increased [Recovering/Resolving]
  - Joint swelling [Unknown]
  - Syncope [Unknown]
  - Head injury [Recovered/Resolved]
  - Anaemia [Unknown]
  - Macular degeneration [Not Recovered/Not Resolved]
  - Joint arthroplasty [Recovering/Resolving]
  - Memory impairment [Not Recovered/Not Resolved]
  - Tooth extraction [Unknown]
  - Postoperative wound infection [Recovered/Resolved]
  - Crohn^s disease [Recovered/Resolved]
  - Swelling face [Unknown]

NARRATIVE: CASE EVENT DATE: 2015
